FAERS Safety Report 5688647-6 (Version None)
Quarter: 2008Q1

REPORT INFORMATION
  Report Type: 
  Country: None (occurrence: None)
  Receive Date: 20080331
  Receipt Date: 20080229
  Transmission Date: 20080703
  Serious: No
  Sender: FDA-Public Use
  Company Number: US-BAYER-200815898NA

PATIENT
  Sex: Female

DRUGS (2)
  1. YAZ [Suspect]
     Route: 048
     Dates: end: 20080223
  2. YAZ [Suspect]
     Route: 048
     Dates: start: 20071101, end: 20080101

REACTIONS (1)
  - MENORRHAGIA [None]
